FAERS Safety Report 17654622 (Version 5)
Quarter: 2022Q2

REPORT INFORMATION
  Report Type: Report from Study
  Country: US (occurrence: US)
  Receive Date: 20200410
  Receipt Date: 20220517
  Transmission Date: 20220721
  Serious: Yes (Other)
  Sender: FDA-Public Use
  Company Number: US-BIOGEN-2020BI00860400

PATIENT
  Sex: Female

DRUGS (5)
  1. AVONEX PEN [Suspect]
     Active Substance: INTERFERON BETA-1A
     Indication: Multiple sclerosis
     Route: 030
     Dates: start: 200602, end: 201704
  2. AVONEX PEN [Suspect]
     Active Substance: INTERFERON BETA-1A
     Route: 030
     Dates: start: 2019
  3. AVONEX PEN [Suspect]
     Active Substance: INTERFERON BETA-1A
     Route: 030
     Dates: start: 20060210, end: 201705
  4. AVONEX PEN [Suspect]
     Active Substance: INTERFERON BETA-1A
  5. IMURAN [Suspect]
     Active Substance: AZATHIOPRINE
     Indication: Product used for unknown indication
     Dosage: ON IMURAN FOR 10 YEARS
     Route: 065

REACTIONS (2)
  - Hodgkin^s disease [Recovered/Resolved]
  - Non-Hodgkin^s lymphoma [Recovered/Resolved]

NARRATIVE: CASE EVENT DATE: 20170101
